FAERS Safety Report 9163503 (Version 1)
Quarter: 2013Q1

REPORT INFORMATION
  Report Type: Spontaneous
  Country: AU (occurrence: AU)
  Receive Date: 20130314
  Receipt Date: 20130314
  Transmission Date: 20140127
  Serious: No
  Sender: FDA-Public Use
  Company Number: AU-009507513-1303AUS006675

PATIENT
  Sex: Female

DRUGS (1)
  1. ASENAPINE MALEATE [Suspect]
     Indication: SCHIZOPHRENIA
     Dosage: UNK
     Dates: start: 201203

REACTIONS (1)
  - Pruritus generalised [Unknown]
